FAERS Safety Report 9881296 (Version 2)
Quarter: 2014Q1

REPORT INFORMATION
  Report Type: Report from Study
  Country: AR (occurrence: AR)
  Receive Date: 20140207
  Receipt Date: 20140207
  Transmission Date: 20141002
  Serious: Yes (Hospitalization)
  Sender: FDA-Public Use
  Company Number: 2013SP002739

PATIENT
  Age: 48 Year
  Sex: Female
  Weight: 104 kg

DRUGS (6)
  1. SM-13496 [Suspect]
     Indication: BIPOLAR DISORDER
     Route: 048
     Dates: start: 20130711, end: 20130918
  2. DIVALPROEX [Concomitant]
     Indication: BIPOLAR DISORDER
     Route: 048
     Dates: start: 20121012
  3. LORAZEPAM [Concomitant]
     Indication: BIPOLAR DISORDER
     Route: 048
     Dates: start: 20130916, end: 20130919
  4. LORAZEPAM [Concomitant]
     Indication: BIPOLAR DISORDER
     Route: 048
     Dates: start: 20130901, end: 20130901
  5. LORAZEPAM [Concomitant]
     Indication: BIPOLAR DISORDER
     Route: 048
     Dates: start: 20130830, end: 20130830
  6. VENLAFAXINA [Concomitant]
     Indication: BIPOLAR DISORDER
     Route: 048
     Dates: start: 20130925

REACTIONS (1)
  - Depression [Recovered/Resolved]
